FAERS Safety Report 9248274 (Version 1)
Quarter: 2013Q1

REPORT INFORMATION
  Report Type: Spontaneous
  Country: US (occurrence: None)
  Receive Date: 20130305
  Receipt Date: 20130305
  Transmission Date: 20140127
  Serious: Yes (Other)
  Sender: FDA-Public Use
  Company Number: 163-21880-12101022

PATIENT
  Age: 73 Year
  Sex: Female
  Weight: 63.5 kg

DRUGS (7)
  1. REVLIMID [Suspect]
     Indication: PLASMA CELL MYELOMA
     Dosage: 5 MG, 28 IN 28 D, PO; TEMPORARILY INTERRUPTED
     Route: 048
     Dates: start: 20120224
  2. VITAMINS [Concomitant]
  3. LOSARTAN (LOSARTAN) [Concomitant]
  4. SIMVASTATIN (SIMVASTATIN) [Concomitant]
  5. FOSRENOL (LANTHANUM CARBONATE) [Concomitant]
  6. ARANESP (DARBEPOETIN ALFA) [Concomitant]
  7. FERROUS SULFATE (FERROUS SULFATE) [Concomitant]

REACTIONS (1)
  - Full blood count decreased [None]
